FAERS Safety Report 11124208 (Version 2)
Quarter: 2015Q2

REPORT INFORMATION
  Report Type: Report from Study
  Country: US (occurrence: None)
  Receive Date: 20150518
  Receipt Date: 20150526
  Transmission Date: 20150821
  Serious: Yes (Other)
  Sender: FDA-Public Use
  Company Number: US-001943

PATIENT
  Sex: Female

DRUGS (2)
  1. GATTEX [Suspect]
     Active Substance: TEDUGLUTIDE\WATER
     Indication: SHORT-BOWEL SYNDROME
     Dosage: (0.37 ML QD, DF SUBCUTANEOUS)
     Route: 058
  2. SOLUTIONS FOR PARENTERAL NUTRITION [Concomitant]
     Active Substance: AMINO ACIDS\DEXTROSE\ELECTROLYTES NOS

REACTIONS (6)
  - Fatigue [None]
  - Arthritis [None]
  - Headache [None]
  - Drug prescribing error [None]
  - Thyroid neoplasm [None]
  - Sleep disorder [None]
